FAERS Safety Report 13388027 (Version 1)
Quarter: 2017Q1

REPORT INFORMATION
  Report Type: Spontaneous
  Country: FR (occurrence: FR)
  Receive Date: 20170330
  Receipt Date: 20170330
  Transmission Date: 20170429
  Serious: Yes (Death, Other)
  Sender: FDA-Public Use
  Company Number: FR-IMPAX LABORATORIES, INC-2017-IPXL-00750

PATIENT
  Age: 49 Year
  Sex: Male

DRUGS (2)
  1. OXAZEPAM. [Suspect]
     Active Substance: OXAZEPAM
     Indication: PRODUCT USED FOR UNKNOWN INDICATION
     Dosage: 50 MG, UNK
     Route: 065
  2. BACLOFEN. [Suspect]
     Active Substance: BACLOFEN
     Indication: ALCOHOL USE
     Dosage: UNK
     Route: 065

REACTIONS (4)
  - Off label use [Unknown]
  - Asphyxia [Fatal]
  - Drug level above therapeutic [Unknown]
  - Toxicity to various agents [Fatal]
